FAERS Safety Report 13703494 (Version 1)
Quarter: 2017Q2

REPORT INFORMATION
  Report Type: Report from Study
  Country: US (occurrence: US)
  Receive Date: 20170629
  Receipt Date: 20170629
  Transmission Date: 20170830
  Serious: Yes (Hospitalization, Other)
  Sender: FDA-Public Use
  Company Number: US-BAXALTA-2017BLT005530

PATIENT
  Age: 21 Year
  Sex: Male

DRUGS (13)
  1. POLYETHYLENE GLYCOL [Concomitant]
     Active Substance: POLYETHYLENE GLYCOLS
     Indication: PRODUCT USED FOR UNKNOWN INDICATION
     Dosage: 17 G, 1X A DAY, AS NEEDED
     Route: 048
  2. CEFAZOLIN [Concomitant]
     Active Substance: CEFAZOLIN
     Indication: PROPHYLAXIS
  3. ADVATE [Suspect]
     Active Substance: ANTIHEMOPHILIC FACTOR, HUMAN RECOMBINANT
     Indication: FACTOR VIII DEFICIENCY
     Dosage: 3000 U, EVERY 8 HOURS WHILE INPATIENT, BOLUS INFUSIONS
     Route: 042
     Dates: start: 20170520, end: 20170608
  4. ADVATE [Suspect]
     Active Substance: ANTIHEMOPHILIC FACTOR, HUMAN RECOMBINANT
     Indication: HAEMORRHAGE
  5. ACETAMINOPHEN. [Concomitant]
     Active Substance: ACETAMINOPHEN
     Indication: PAIN
     Dosage: 500 MG, 2 TABS EVERY 6 HOURS AS NEEDED
     Route: 065
  6. BAXJECT II [Suspect]
     Active Substance: DEVICE
     Indication: SURGERY
  7. ADVATE [Suspect]
     Active Substance: ANTIHEMOPHILIC FACTOR, HUMAN RECOMBINANT
     Indication: PROPHYLAXIS
  8. OXYCODONE [Concomitant]
     Active Substance: OXYCODONE
     Indication: PROCEDURAL PAIN
     Dosage: 7.5 MG, EVERY 4 HOURS
     Route: 048
     Dates: start: 20170520
  9. MORPHINE [Concomitant]
     Active Substance: MORPHINE
     Indication: PROCEDURAL PAIN
  10. BAXJECT II [Suspect]
     Active Substance: DEVICE
     Indication: HAEMORRHAGE
  11. ADVATE [Suspect]
     Active Substance: ANTIHEMOPHILIC FACTOR, HUMAN RECOMBINANT
     Indication: SURGERY
  12. BAXJECT II [Suspect]
     Active Substance: DEVICE
     Indication: FACTOR VIII DEFICIENCY
     Dosage: 3000 U, EVERY 8 HOURS WHILE INPATIENT, BOLUS INFUSIONS
     Route: 042
     Dates: start: 20170520, end: 20170608
  13. BAXJECT II [Suspect]
     Active Substance: DEVICE
     Indication: PROPHYLAXIS

REACTIONS (2)
  - Inhibiting antibodies positive [Not Recovered/Not Resolved]
  - Neuralgia [Unknown]

NARRATIVE: CASE EVENT DATE: 20170527
